FAERS Safety Report 13048166 (Version 1)
Quarter: 2016Q4

REPORT INFORMATION
  Report Type: Spontaneous
  Country: US (occurrence: US)
  Receive Date: 20161220
  Receipt Date: 20161220
  Transmission Date: 20170207
  Serious: Yes (Death, Life-Threatening, Hospitalization, Disabling)
  Sender: FDA-Public Use
  Company Number: None

PATIENT
  Age: 87 Year
  Sex: Male
  Weight: 40.5 kg

DRUGS (1)
  1. AMNIODARONE [Suspect]
     Active Substance: AMIODARONE
     Indication: ATRIAL FIBRILLATION
     Dates: start: 20120711, end: 20120816

REACTIONS (7)
  - Fatigue [None]
  - Confusional state [None]
  - Decreased appetite [None]
  - Weight decreased [None]
  - Asthenia [None]
  - Abasia [None]
  - Visual impairment [None]

NARRATIVE: CASE EVENT DATE: 20120711
